FAERS Safety Report 12328578 (Version 1)
Quarter: 2016Q2

REPORT INFORMATION
  Report Type: Spontaneous
  Country: US (occurrence: US)
  Receive Date: 20160503
  Receipt Date: 20160503
  Transmission Date: 20160815
  Serious: No
  Sender: FDA-Public Use
  Company Number: US-BEH-2015049337

PATIENT
  Sex: Female
  Weight: 75 kg

DRUGS (31)
  1. ACETAMINOPHEN. [Concomitant]
     Active Substance: ACETAMINOPHEN
  2. SERTRALINE [Concomitant]
     Active Substance: SERTRALINE HYDROCHLORIDE
  3. TAZTIA XT [Concomitant]
     Active Substance: DILTIAZEM HYDROCHLORIDE
  4. HIZENTRA [Suspect]
     Active Substance: HUMAN IMMUNOGLOBULIN G
     Indication: IMMUNODEFICIENCY COMMON VARIABLE
     Route: 058
  5. HIZENTRA [Suspect]
     Active Substance: HUMAN IMMUNOGLOBULIN G
     Route: 058
  6. EPIPEN [Concomitant]
     Active Substance: EPINEPHRINE
  7. METHOCARBAMOL. [Concomitant]
     Active Substance: METHOCARBAMOL
  8. VITAMIN D [Concomitant]
     Active Substance: CHOLECALCIFEROL
  9. METHOCARBAMOL. [Concomitant]
     Active Substance: METHOCARBAMOL
  10. LIDODERM [Concomitant]
     Active Substance: LIDOCAINE
  11. CYCLOBENZAPRINE [Concomitant]
     Active Substance: CYCLOBENZAPRINE
  12. CLARITIN-D 12 HOUR [Concomitant]
     Active Substance: LORATADINE\PSEUDOEPHEDRINE SULFATE
  13. CALCIUM 600+D [Concomitant]
     Active Substance: CALCIUM\VITAMIN D
  14. DIPHENHYDRAMINE. [Concomitant]
     Active Substance: DIPHENHYDRAMINE
  15. LIDOCAINE. [Concomitant]
     Active Substance: LIDOCAINE
  16. OXAZEPAM. [Concomitant]
     Active Substance: OXAZEPAM
  17. LIDODERM [Concomitant]
     Active Substance: LIDOCAINE
  18. MELOXICAM. [Concomitant]
     Active Substance: MELOXICAM
  19. OXYBUTYNIN [Concomitant]
     Active Substance: OXYBUTYNIN
  20. VITAMIN D3 [Concomitant]
     Active Substance: CHOLECALCIFEROL
  21. DULERA [Concomitant]
     Active Substance: FORMOTEROL FUMARATE DIHYDRATE\MOMETASONE FUROATE
  22. CLARITIN [Concomitant]
     Active Substance: LORATADINE
  23. SINGULAIR [Concomitant]
     Active Substance: MONTELUKAST SODIUM
  24. BUSPIRONE [Concomitant]
     Active Substance: BUSPIRONE HYDROCHLORIDE
  25. BUPROPION. [Concomitant]
     Active Substance: BUPROPION
  26. CRESTOR [Concomitant]
     Active Substance: ROSUVASTATIN CALCIUM
  27. WARFARIN [Concomitant]
     Active Substance: WARFARIN
  28. ONE DAILY WOMEN^S [Concomitant]
  29. ONE A DAY 50+ [Concomitant]
  30. LANSOPRAZOLE. [Concomitant]
     Active Substance: LANSOPRAZOLE
  31. DOXEPIN [Concomitant]
     Active Substance: DOXEPIN

REACTIONS (2)
  - Contusion [Unknown]
  - Upper respiratory tract infection [Unknown]
